FAERS Safety Report 20100044 (Version 1)
Quarter: 2021Q4

REPORT INFORMATION
  Report Type: Spontaneous
  Country: US (occurrence: US)
  Receive Date: 20211123
  Receipt Date: 20211123
  Transmission Date: 20220303
  Serious: Yes (Hospitalization, Other)
  Sender: FDA-Public Use
  Company Number: US-AUROBINDO-AUR-APL-2021-047786

PATIENT
  Age: 30 Year
  Sex: Female

DRUGS (2)
  1. AMLODIPINE [Suspect]
     Active Substance: AMLODIPINE BESYLATE
     Indication: Product used for unknown indication
     Dosage: UNK
     Route: 065
  2. HYDROXYZINE [Suspect]
     Active Substance: HYDROXYZINE HYDROCHLORIDE
     Indication: Product used for unknown indication
     Dosage: 25 MILLIGRAM
     Route: 065

REACTIONS (10)
  - Acute respiratory distress syndrome [Unknown]
  - Distributive shock [Recovered/Resolved]
  - Metabolic acidosis [Unknown]
  - Thirst [Unknown]
  - Urinary retention [Unknown]
  - Delirium [Unknown]
  - Hallucination, visual [Unknown]
  - Overdose [Unknown]
  - Hypotension [Unknown]
  - Hypoxia [Unknown]
